FAERS Safety Report 8576824-6 (Version None)
Quarter: 2012Q3

REPORT INFORMATION
  Report Type: 
  Country: None (occurrence: None)
  Receive Date: 20120807
  Receipt Date: 20120730
  Transmission Date: 20120928
  Serious: Yes (Other)
  Sender: FDA-Public Use
  Company Number: US-COVIDIEN/TYCO HEALTHCARE/MALLINCKRODT-T201202943

PATIENT
  Age: 47 Year
  Sex: Male

DRUGS (3)
  1. TIZANIDINE HYDROCHLORIDE [Suspect]
     Dosage: 15 MG, 26 PILLS INGESTED, 390 MG TOTAL
     Route: 048
     Dates: start: 20120624, end: 20120624
  2. EXALGO [Suspect]
     Dosage: 2 - 16 MG, 36 MG TOTAL
     Route: 048
     Dates: start: 20120624, end: 20120624
  3. BACLOFEN [Suspect]
     Dosage: 20 MG, UNK
     Route: 048
     Dates: start: 20120624, end: 20120624

REACTIONS (3)
  - DRUG DIVERSION [None]
  - TACHYCARDIA [None]
  - INTENTIONAL DRUG MISUSE [None]
